FAERS Safety Report 9334541 (Version 2)
Quarter: 2013Q2

REPORT INFORMATION
  Report Type: Spontaneous
  Country: FR (occurrence: FR)
  Receive Date: 20130606
  Receipt Date: 20130624
  Transmission Date: 20140414
  Serious: Yes (Hospitalization)
  Sender: FDA-Public Use
  Company Number: FR-SANOFI-AVENTIS-2013SA054566

PATIENT
  Age: 80 Year
  Sex: Female

DRUGS (5)
  1. TAXOTERE [Suspect]
     Indication: BREAST CANCER
     Route: 065
     Dates: start: 20110309
  2. FORTZAAR [Suspect]
     Indication: HYPERTENSION
     Route: 048
  3. FOSAVANCE [Suspect]
     Indication: OSTEOPOROSIS
     Route: 048
  4. LEXOMIL [Concomitant]
  5. INIPOMP [Concomitant]

REACTIONS (3)
  - Anaemia [Recovered/Resolved]
  - Cough [Recovered/Resolved]
  - Gastrooesophageal reflux disease [Recovered/Resolved]
